FAERS Safety Report 8538892-7 (Version None)
Quarter: 2012Q3

REPORT INFORMATION
  Report Type: 
  Country: None (occurrence: None)
  Receive Date: 20120713
  Receipt Date: 20110815
  Transmission Date: 20120928
  Serious: Yes (Other)
  Sender: FDA-Public Use
  Company Number: 1014330

PATIENT
  Age: 23 Year
  Sex: Male

DRUGS (1)
  1. PROPOFOL [Suspect]
     Indication: STATUS EPILEPTICUS
     Dosage: AT PEAK OF 80 MCG/KG/MIN, (UNKNOWN)
     Route: 041

REACTIONS (7)
  - RENAL FAILURE ACUTE [None]
  - RHABDOMYOLYSIS [None]
  - HYPERTRIGLYCERIDAEMIA [None]
  - LACTIC ACIDOSIS [None]
  - PROPOFOL INFUSION SYNDROME [None]
  - ELECTROCARDIOGRAM ST SEGMENT ELEVATION [None]
  - ELECTROCARDIOGRAM ABNORMAL [None]
